FAERS Safety Report 7957005-3 (Version None)
Quarter: 2011Q4

REPORT INFORMATION
  Report Type: 
  Country: None (occurrence: None)
  Receive Date: 20111205
  Receipt Date: 20111205
  Transmission Date: 20120403
  Serious: No
  Sender: FDA-Public Use
  Company Number: None

PATIENT
  Age: 39 Year
  Sex: Female
  Weight: 63.502 kg

DRUGS (2)
  1. CYMBALTA [Suspect]
     Indication: DEPRESSION
     Dates: start: 20110401, end: 20111128
  2. CYMBALTA [Concomitant]
     Indication: ANXIETY

REACTIONS (9)
  - ANXIETY [None]
  - DEPRESSION [None]
  - AGITATION [None]
  - PAIN [None]
  - TEARFULNESS [None]
  - DRY MOUTH [None]
  - DRUG DEPENDENCE [None]
  - HEADACHE [None]
  - PARAESTHESIA [None]
